FAERS Safety Report 16047362 (Version 1)
Quarter: 2019Q1

REPORT INFORMATION
  Report Type: Spontaneous
  Country: CN (occurrence: CN)
  Receive Date: 20190307
  Receipt Date: 20190307
  Transmission Date: 20190418
  Serious: Yes (Other)
  Sender: FDA-Public Use
  Company Number: CN-PFIZER INC-2019102079

PATIENT
  Age: 52 Year
  Sex: Female

DRUGS (1)
  1. MEPEM [Suspect]
     Active Substance: MEROPENEM
     Dosage: 0.5 G, 4X/DAY
     Dates: start: 20180905, end: 20180914

REACTIONS (3)
  - Restlessness [Recovering/Resolving]
  - Delirium [Recovering/Resolving]
  - Depressed level of consciousness [Recovering/Resolving]

NARRATIVE: CASE EVENT DATE: 20180905
